FAERS Safety Report 6186569-8 (Version None)
Quarter: 2009Q2

REPORT INFORMATION
  Report Type: 
  Country: None (occurrence: None)
  Receive Date: 20090512
  Receipt Date: 20090508
  Transmission Date: 20091009
  Serious: Yes (Other)
  Sender: FDA-Public Use
  Company Number: CN-BRISTOL-MYERS SQUIBB COMPANY-14149967

PATIENT
  Age: 8 Decade
  Sex: Male
  Weight: 60 kg

DRUGS (2)
  1. APROVEL [Suspect]
     Indication: HYPERTENSION
     Dosage: 150MG 04 TO JAN07,75MG-JAN08;150MG IN FEB08;75MG FEB+09MAR UNTIL 20MAR08 QD.DISCONTINUED IN NOV08
     Route: 048
     Dates: start: 20050920, end: 20080302
  2. AMLODIPINE [Concomitant]
     Indication: HYPERTENSION
     Route: 048
     Dates: start: 20070220

REACTIONS (1)
  - THROMBOCYTOPENIA [None]
